FAERS Safety Report 11095229 (Version 1)
Quarter: 2015Q2

REPORT INFORMATION
  Report Type: Spontaneous
  Country: US (occurrence: US)
  Receive Date: 20150506
  Receipt Date: 20150506
  Transmission Date: 20150821
  Serious: No
  Sender: FDA-Public Use
  Company Number: US-SA-2014SA124727

PATIENT
  Age: 63 Year
  Sex: Female
  Weight: 136 kg

DRUGS (6)
  1. LEVOTHYROXINE [Concomitant]
     Active Substance: LEVOTHYROXINE
     Indication: HYPOTHYROIDISM
  2. FISH OIL [Concomitant]
     Active Substance: FISH OIL
  3. LISINOPRIL. [Concomitant]
     Active Substance: LISINOPRIL
     Indication: BLOOD PRESSURE
  4. TUMS [Concomitant]
     Active Substance: CALCIUM CARBONATE
  5. HUMALOG [Concomitant]
     Active Substance: INSULIN LISPRO
     Indication: TYPE 2 DIABETES MELLITUS
     Dosage: DOSE: 130-140 UNITS PER DAY
     Dates: end: 20140831
  6. APIDRA [Suspect]
     Active Substance: INSULIN GLULISINE
     Indication: DIABETES MELLITUS
     Dosage: VIA PUMP?DOSE: APPROXIMATELY 130 UNITS
     Route: 065
     Dates: start: 20140901, end: 20140909

REACTIONS (5)
  - Injection site scar [Not Recovered/Not Resolved]
  - Cough [Not Recovered/Not Resolved]
  - Rash [Recovered/Resolved]
  - Chest pain [Recovered/Resolved]
  - Dyspnoea [Recovered/Resolved]

NARRATIVE: CASE EVENT DATE: 20140901
